FAERS Safety Report 7353194-2 (Version None)
Quarter: 2011Q1

REPORT INFORMATION
  Report Type: 
  Country: None (occurrence: None)
  Receive Date: 20110315
  Receipt Date: 20110310
  Transmission Date: 20110831
  Serious: Yes (Hospitalization)
  Sender: FDA-Public Use
  Company Number: US-ABBOTT-11P-163-0710875-00

PATIENT
  Sex: Female
  Weight: 38.59 kg

DRUGS (10)
  1. HUMIRA [Suspect]
     Dates: start: 20110101, end: 20110201
  2. HUMIRA [Suspect]
     Dates: start: 20101001, end: 20101201
  3. STOOL SOFTENER [Concomitant]
     Indication: CONSTIPATION
  4. PREDNISONE [Concomitant]
     Indication: RHEUMATOID ARTHRITIS
  5. PROTONIX [Concomitant]
     Indication: PRODUCT USED FOR UNKNOWN INDICATION
  6. HUMIRA [Suspect]
     Indication: RHEUMATOID ARTHRITIS
     Dates: start: 20060101, end: 20100901
  7. FOLIC ACID [Concomitant]
     Indication: VITAMIN SUPPLEMENTATION
  8. CALCIUM [Concomitant]
     Indication: OSTEOPOROSIS
  9. ASCORBIC ACID [Concomitant]
     Indication: VITAMIN SUPPLEMENTATION
  10. MORPHINE [Concomitant]
     Indication: BACK PAIN

REACTIONS (5)
  - CANDIDIASIS [None]
  - PULMONARY THROMBOSIS [None]
  - THROMBOSIS [None]
  - WHITE BLOOD CELL COUNT DECREASED [None]
  - RED BLOOD CELL COUNT DECREASED [None]
